FAERS Safety Report 12428537 (Version 1)
Quarter: 2016Q2

REPORT INFORMATION
  Report Type: Spontaneous
  Country: US (occurrence: US)
  Receive Date: 20160602
  Receipt Date: 20160602
  Transmission Date: 20160815
  Serious: No
  Sender: FDA-Public Use
  Company Number: US-BAUSCH-BL-2015-017710

PATIENT
  Sex: Female
  Weight: 49.03 kg

DRUGS (3)
  1. ASPIRIN. [Concomitant]
     Active Substance: ASPIRIN
     Indication: PROPHYLAXIS
     Route: 048
     Dates: start: 2012
  2. METOPROLOL. [Concomitant]
     Active Substance: METOPROLOL
     Indication: HYPERTENSION
     Route: 048
  3. ELIDEL [Suspect]
     Active Substance: PIMECROLIMUS
     Indication: ECZEMA
     Dosage: APPLIED TO LEFT EYELID
     Route: 061
     Dates: start: 20150716

REACTIONS (2)
  - Paraesthesia oral [Not Recovered/Not Resolved]
  - Dysgeusia [Not Recovered/Not Resolved]

NARRATIVE: CASE EVENT DATE: 201507
